FAERS Safety Report 20589254 (Version 1)
Quarter: 2022Q1

REPORT INFORMATION
  Report Type: Spontaneous
  Country: US (occurrence: None)
  Receive Date: 20220311
  Receipt Date: 20220311
  Transmission Date: 20220423
  Serious: Yes (Death, Hospitalization)
  Sender: FDA-Public Use
  Company Number: None

PATIENT
  Age: 75 Year
  Sex: Male
  Weight: 118.8 kg

DRUGS (1)
  1. EVUSHELD [Suspect]
     Active Substance: CILGAVIMAB\TIXAGEVIMAB
     Indication: Immunodeficiency
     Dosage: FREQUENCY : ONCE?
     Route: 030
     Dates: start: 20220218, end: 20220218

REACTIONS (9)
  - Cerebrovascular accident [None]
  - Fall [None]
  - Back pain [None]
  - Metabolic encephalopathy [None]
  - Electrolyte imbalance [None]
  - Dizziness [None]
  - Lethargy [None]
  - Mental impairment [None]
  - Meningitis cryptococcal [None]

NARRATIVE: CASE EVENT DATE: 20220219
